FAERS Safety Report 24585976 (Version 2)
Quarter: 2024Q4

REPORT INFORMATION
  Report Type: Report from Study
  Country: CH (occurrence: CH)
  Receive Date: 20241106
  Receipt Date: 20241106
  Transmission Date: 20250115
  Serious: No
  Sender: TRAVERE THERAPEUTICS
  Company Number: CH-Vifor (International) Inc.-VIT-2024-07920

PATIENT
  Sex: Female

DRUGS (1)
  1. FILSPARI [Suspect]
     Active Substance: SPARSENTAN
     Indication: IgA nephropathy
     Dosage: 200 MG DOSAGE IS ACHIEVED BY DIVIDING THE 400 MG TABLET IN HALF

REACTIONS (3)
  - Anxiety [Unknown]
  - Oedema [Unknown]
  - Wrong technique in product usage process [Unknown]
